FAERS Safety Report 9754456 (Version 3)
Quarter: 2013Q4

REPORT INFORMATION
  Report Type: Spontaneous
  Country: JP (occurrence: JP)
  Receive Date: 20131213
  Receipt Date: 20131221
  Transmission Date: 20140711
  Serious: Yes (Hospitalization, Other)
  Sender: FDA-Public Use
  Company Number: JP-ASTRAZENECA-2013SE87209

PATIENT
  Age: 81 Year
  Sex: Female

DRUGS (17)
  1. MEROPEN [Suspect]
     Indication: PYREXIA
     Route: 042
     Dates: start: 20131012, end: 20131017
  2. ALDACTONE A [Concomitant]
     Indication: HYPERTENSION
     Route: 048
     Dates: end: 20131017
  3. ALDACTONE A [Concomitant]
     Indication: RENAL FAILURE CHRONIC
     Route: 048
     Dates: end: 20131017
  4. ALOSITOL [Concomitant]
     Indication: HYPERURICAEMIA
     Route: 048
     Dates: end: 20131017
  5. CALONAL [Concomitant]
     Indication: BACK PAIN
     Route: 048
     Dates: end: 20131017
  6. THYRADIN S [Concomitant]
     Indication: HYPOTHYROIDISM
     Route: 048
  7. LASIX [Concomitant]
     Indication: HYPERTENSION
     Route: 048
     Dates: end: 20131017
  8. LASIX [Concomitant]
     Indication: RENAL FAILURE CHRONIC
     Route: 048
     Dates: end: 20131017
  9. FLUITRAN [Concomitant]
     Indication: HYPERTENSION
     Route: 048
     Dates: end: 20131017
  10. FLUITRAN [Concomitant]
     Indication: RENAL FAILURE CHRONIC
     Route: 048
     Dates: end: 20131017
  11. KREMEZIN [Concomitant]
     Indication: RENAL FAILURE CHRONIC
     Route: 048
     Dates: end: 20131017
  12. MUCOSTA [Concomitant]
     Indication: GASTRITIS
     Route: 048
  13. DAIKENCHUTO [Concomitant]
     Route: 048
     Dates: end: 20131017
  14. KAMAG G [Concomitant]
     Indication: CONSTIPATION
     Route: 048
     Dates: end: 20131017
  15. ARTZ [Concomitant]
     Indication: OSTEOARTHRITIS
     Route: 065
     Dates: end: 20131016
  16. SULTAMICILLIN TOSILATE HYDRATE [Concomitant]
  17. UNASYN-S [Concomitant]
     Route: 041
     Dates: start: 20131010, end: 20131012

REACTIONS (3)
  - Pyrexia [Recovering/Resolving]
  - Intervertebral discitis [Unknown]
  - Laboratory test abnormal [Recovering/Resolving]
